FAERS Safety Report 5655779-8 (Version None)
Quarter: 2008Q1

REPORT INFORMATION
  Report Type: 
  Country: None (occurrence: None)
  Receive Date: 20080307
  Receipt Date: 20080227
  Transmission Date: 20080703
  Serious: Yes (Hospitalization)
  Sender: FDA-Public Use
  Company Number: FR-PFIZER INC-2007101600

PATIENT
  Sex: Female
  Weight: 100 kg

DRUGS (7)
  1. TAHOR [Suspect]
  2. PHOLCODINE [Suspect]
     Indication: COUGH
     Dosage: FREQ:FREQUENCY: TID
  3. BIOCALYPTOL-PHOLCODINE [Concomitant]
  4. DOLIPRANE [Concomitant]
  5. KARDEGIC [Concomitant]
  6. LOXEN [Concomitant]
  7. SERETIDE [Concomitant]

REACTIONS (3)
  - FALL [None]
  - LOSS OF CONSCIOUSNESS [None]
  - MALAISE [None]
